FAERS Safety Report 7145418-1 (Version None)
Quarter: 2010Q4

REPORT INFORMATION
  Report Type: 
  Country: None (occurrence: None)
  Receive Date: 20101208
  Receipt Date: 20101129
  Transmission Date: 20110411
  Serious: Yes (Hospitalization)
  Sender: FDA-Public Use
  Company Number: ES-SANOFI-AVENTIS-2010SA070073

PATIENT
  Age: 85 Year
  Sex: Female

DRUGS (9)
  1. MULTAQ [Suspect]
     Indication: ARRHYTHMIA
     Route: 048
     Dates: start: 20101111, end: 20101114
  2. MULTAQ [Suspect]
     Route: 048
     Dates: start: 20101111, end: 20101114
  3. EMCONCOR /SPA/ [Concomitant]
  4. SEGURIL [Concomitant]
  5. SOMAZINA [Concomitant]
  6. LEXATIN [Concomitant]
  7. ATACAND [Concomitant]
  8. SINTROM [Concomitant]
     Dosage: DOSE:0.5 UNIT(S)
     Route: 065
  9. TRANGOREX [Concomitant]
     Route: 065
     Dates: start: 20100901, end: 20101108

REACTIONS (5)
  - BLOOD CREATININE INCREASED [None]
  - DIARRHOEA [None]
  - HEPATITIS TOXIC [None]
  - RENAL FAILURE [None]
  - VOMITING [None]
